FAERS Safety Report 11784107 (Version 1)
Quarter: 2015Q4

REPORT INFORMATION
  Report Type: Spontaneous
  Country: US (occurrence: US)
  Receive Date: 20151128
  Receipt Date: 20151128
  Transmission Date: 20160305
  Serious: No
  Sender: FDA-Public Use
  Company Number: US-NOVEN PHARMACEUTICALS, INC.-US2015000703

PATIENT
  Age: 38 Year
  Sex: Female

DRUGS (1)
  1. MINIVELLE [Suspect]
     Active Substance: ESTRADIOL
     Indication: HYSTERECTOMY
     Dosage: UNK, UNKNOWN
     Route: 062
     Dates: start: 2013, end: 20150801

REACTIONS (6)
  - Application site erythema [Unknown]
  - Application site pain [Unknown]
  - Therapy cessation [Unknown]
  - Application site pruritus [Unknown]
  - Inappropriate schedule of drug administration [Unknown]
  - Application site rash [Unknown]

NARRATIVE: CASE EVENT DATE: 201507
